FAERS Safety Report 4881664-5 (Version None)
Quarter: 2006Q1

REPORT INFORMATION
  Report Type: 
  Country: None (occurrence: None)
  Receive Date: 20060112
  Receipt Date: 20060112
  Transmission Date: 20060701
  Serious: Yes (Hospitalization, Other)
  Sender: FDA-Public Use
  Company Number: None

PATIENT
  Sex: Male
  Weight: 73.5 kg

DRUGS (2)
  1. MELPHALAN [Suspect]
     Indication: MULTIPLE MYELOMA
     Dosage: SEE IMAGE
     Route: 042
     Dates: start: 20051007
  2. G-CSF [Suspect]
     Dosage: SEE IMAGES
     Route: 058
     Dates: start: 20051007

REACTIONS (2)
  - FEBRILE NEUTROPENIA [None]
  - VIRAL INFECTION [None]
